FAERS Safety Report 10083619 (Version 2)
Quarter: 2014Q2

REPORT INFORMATION
  Report Type: Spontaneous
  Country: US (occurrence: US)
  Receive Date: 20140417
  Receipt Date: 20140605
  Transmission Date: 20141212
  Serious: No
  Sender: FDA-Public Use
  Company Number: US-PFIZER INC-2014103825

PATIENT
  Age: 68 Year
  Sex: Male

DRUGS (5)
  1. DEPO-TESTOSTERONE [Suspect]
     Indication: BLOOD TESTOSTERONE DECREASED
     Dosage: 1-2 ML, EVERY 21 DAYS
     Route: 030
     Dates: start: 2012
  2. DEPO-TESTOSTERONE [Suspect]
  3. NORVASC [Concomitant]
     Dosage: 10 MG, UNK
     Dates: end: 201312
  4. CATAPRES [Concomitant]
     Dosage: 0.1 MG, UNK
     Dates: end: 201312
  5. ZOCOR [Concomitant]
     Dosage: 40 MG, UNK
     Dates: end: 201312

REACTIONS (2)
  - Drug ineffective [Unknown]
  - Product quality issue [Unknown]
